FAERS Safety Report 23687576 (Version 2)
Quarter: 2025Q1

REPORT INFORMATION
  Report Type: Spontaneous
  Country: US (occurrence: US)
  Receive Date: 20240329
  Receipt Date: 20250127
  Transmission Date: 20250409
  Serious: Yes (Other)
  Sender: ASTELLAS
  Company Number: US-ASTELLAS-2024US009471

PATIENT
  Age: 60 Year
  Sex: Male

DRUGS (1)
  1. XTANDI [Suspect]
     Active Substance: ENZALUTAMIDE
     Indication: Prostate cancer
     Dosage: 160 MG, ONCE DAILY
     Route: 048
     Dates: start: 20231012, end: 202411

REACTIONS (8)
  - Erectile dysfunction [Unknown]
  - Fatigue [Recovered/Resolved]
  - Micturition urgency [Not Recovered/Not Resolved]
  - Brain fog [Recovered/Resolved]
  - Somnolence [Unknown]
  - Nocturia [Not Recovered/Not Resolved]
  - Prostatomegaly [Unknown]
  - Dizziness [Unknown]

NARRATIVE: CASE EVENT DATE: 20231001
